FAERS Safety Report 25408676 (Version 1)
Quarter: 2025Q2

REPORT INFORMATION
  Report Type: Spontaneous
  Country: GB (occurrence: GB)
  Receive Date: 20250606
  Receipt Date: 20250606
  Transmission Date: 20250717
  Serious: Yes (Hospitalization, Disabling, Other)
  Sender: ELI LILLY AND COMPANY
  Company Number: GB-ELI_LILLY_AND_COMPANY-GB202506003366

PATIENT
  Age: 28 Year
  Sex: Female

DRUGS (3)
  1. MOUNJARO [Suspect]
     Active Substance: TIRZEPATIDE
     Indication: Product used for unknown indication
     Dosage: 2.5 MG, WEEKLY (1/W)
     Route: 065
     Dates: start: 20250424, end: 20250506
  2. PROGESTERONE [Concomitant]
     Active Substance: PROGESTERONE
     Indication: Contraception
     Route: 065
  3. SERTRALINE [Concomitant]
     Active Substance: SERTRALINE HYDROCHLORIDE
     Indication: Product used for unknown indication
     Route: 065

REACTIONS (6)
  - Depressed mood [Recovered/Resolved]
  - Suicidal behaviour [Recovered/Resolved]
  - Mood swings [Recovered/Resolved]
  - Fatigue [Recovering/Resolving]
  - Overdose [Unknown]
  - Agitation [Unknown]
